FAERS Safety Report 7628353-1 (Version None)
Quarter: 2011Q3

REPORT INFORMATION
  Report Type: 
  Country: None (occurrence: None)
  Receive Date: 20110722
  Receipt Date: 20110715
  Transmission Date: 20111222
  Serious: Yes (Other)
  Sender: FDA-Public Use
  Company Number: US-BAYER-2011-044983

PATIENT
  Age: 29 Year
  Sex: Female
  Weight: 66.213 kg

DRUGS (1)
  1. MIRENA [Suspect]
     Indication: CONTRACEPTION
     Dosage: 20 MCG/24HR, CONT
     Route: 015
     Dates: start: 20101215, end: 20101217

REACTIONS (2)
  - RETAINED PLACENTA OR MEMBRANES [None]
  - GENITAL HAEMORRHAGE [None]
